FAERS Safety Report 6547206-3 (Version None)
Quarter: 2010Q1

REPORT INFORMATION
  Report Type: 
  Country: None (occurrence: None)
  Receive Date: 20100122
  Receipt Date: 20100111
  Transmission Date: 20100710
  Serious: Yes (Hospitalization, Other)
  Sender: FDA-Public Use
  Company Number: US-ELI_LILLY_AND_COMPANY-US200912005509

PATIENT
  Sex: Female
  Weight: 54.422 kg

DRUGS (20)
  1. PEMETREXED [Suspect]
     Indication: NON-SMALL CELL LUNG CANCER
     Dosage: 500 MG/M2, OTHER
     Route: 042
     Dates: start: 20091204, end: 20091204
  2. PEMETREXED [Suspect]
     Dosage: 500 MG/M2, OTHER
     Route: 042
     Dates: start: 20100112
  3. CARBOPLATIN [Suspect]
     Indication: NON-SMALL CELL LUNG CANCER
     Dosage: 6 D/F, OTHER
     Route: 042
     Dates: start: 20091204, end: 20091204
  4. CARBOPLATIN [Suspect]
     Dosage: 6 D/F, OTHER
     Route: 042
     Dates: start: 20100112
  5. BEVACIZUMAB [Suspect]
     Indication: NON-SMALL CELL LUNG CANCER
     Dosage: 15 MG/KG, OTHER
     Route: 042
     Dates: start: 20091204, end: 20091204
  6. BEVACIZUMAB [Suspect]
     Dosage: 15 MG/KG, OTHER
     Route: 042
     Dates: start: 20100112
  7. CRESTOR [Concomitant]
     Indication: DYSLIPIDAEMIA
     Dates: start: 20070101
  8. BUSPAR [Concomitant]
     Indication: DEPRESSION
     Dates: start: 20060101
  9. VALTREX [Concomitant]
     Indication: PROPHYLAXIS
  10. IBUPROFEN [Concomitant]
     Indication: PAIN
     Dosage: UNK, AS NEEDED
     Dates: start: 20091101
  11. COMPAZINE [Concomitant]
     Indication: NAUSEA
     Dates: start: 20091204
  12. MIRALAX [Concomitant]
     Indication: CONSTIPATION
     Dates: start: 20091001
  13. DIFLUCAN [Concomitant]
     Indication: FUNGAL INFECTION
     Dates: start: 20091210
  14. LORAZEPAM [Concomitant]
     Indication: NAUSEA
     Dates: start: 20091204
  15. METOPROLOL [Concomitant]
     Indication: HYPERTENSION
     Dosage: UNK, UNKNOWN
     Route: 065
     Dates: start: 20091224
  16. DEXAMETHASONE [Concomitant]
     Dosage: UNK, UNKNOWN
     Route: 065
     Dates: start: 20091203
  17. NITROGLYCERIN [Concomitant]
     Dosage: UNK, UNKNOWN
     Route: 065
  18. PROTONIX [Concomitant]
     Dosage: UNK, UNKNOWN
     Route: 065
  19. WELLBUTRIN [Concomitant]
     Dosage: UNK, UNKNOWN
     Route: 065
  20. SIMVASTATIN [Concomitant]
     Dosage: UNK, UNKNOWN
     Route: 065

REACTIONS (3)
  - ASTHENIA [None]
  - DEHYDRATION [None]
  - HYPOKALAEMIA [None]
